FAERS Safety Report 17838518 (Version 1)
Quarter: 2020Q2

REPORT INFORMATION
  Report Type: Spontaneous
  Country: US (occurrence: US)
  Receive Date: 20200528
  Receipt Date: 20200528
  Transmission Date: 20200714
  Serious: Yes (Death, Other)
  Sender: FDA-Public Use
  Company Number: NVSC2020US142613

PATIENT
  Age: 20 Year
  Sex: Male

DRUGS (2)
  1. MYCOPHENOLATE MOFETIL. [Suspect]
     Active Substance: MYCOPHENOLATE MOFETIL
     Indication: IMMUNOSUPPRESSION
     Dosage: 1000 MG, BID
     Route: 065
  2. TACROLIMUS. [Suspect]
     Active Substance: TACROLIMUS
     Indication: IMMUNOSUPPRESSION
     Dosage: 7.8-10 NG/ML
     Route: 065

REACTIONS (6)
  - JC virus infection [Fatal]
  - Pulmonary haemorrhage [Unknown]
  - Neurological decompensation [Fatal]
  - Immune reconstitution inflammatory syndrome [Unknown]
  - Pupils unequal [Unknown]
  - Progressive multifocal leukoencephalopathy [Fatal]
